FAERS Safety Report 12924411 (Version 1)
Quarter: 2016Q4

REPORT INFORMATION
  Report Type: Spontaneous
  Country: JP (occurrence: JP)
  Receive Date: 20161109
  Receipt Date: 20161109
  Transmission Date: 20170207
  Serious: Yes (Hospitalization, Other)
  Sender: FDA-Public Use
  Company Number: JP-GLENMARK PHARMACEUTICALS INC, USA.-2016GMK024890

PATIENT
  Age: 59 Year
  Sex: Female
  Weight: 35 kg

DRUGS (5)
  1. OXYCODONE HYDROCHLORIDE. [Concomitant]
     Active Substance: OXYCODONE HYDROCHLORIDE
     Dosage: 180 MG, QD
     Route: 065
  2. OXYCODONE HYDROCHLORIDE. [Concomitant]
     Active Substance: OXYCODONE HYDROCHLORIDE
     Indication: ANALGESIC THERAPY
     Dosage: 240 MG, QD
     Route: 065
  3. BETAMETHASONE DIPROPIONATE. [Suspect]
     Active Substance: BETAMETHASONE DIPROPIONATE
     Indication: PRODUCT USED FOR UNKNOWN INDICATION
     Dosage: 1.5 MG, QD
     Route: 065
  4. TRIFLURIDINE. [Suspect]
     Active Substance: TRIFLURIDINE
     Indication: PRODUCT USED FOR UNKNOWN INDICATION
     Dosage: 35 MG/M2, UNK (28DAY CYCLE: 2WEEK CYCLE OF 5 DAYS TREATMENT, FOLLWED BY 2 DAY REST, 14 DAY REST)
     Route: 048
  5. LEVOFLOXACIN. [Concomitant]
     Active Substance: LEVOFLOXACIN
     Indication: PRODUCT USED FOR UNKNOWN INDICATION
     Dosage: UNK
     Route: 065

REACTIONS (2)
  - Pneumocystis jirovecii pneumonia [Recovering/Resolving]
  - Interstitial lung disease [Recovering/Resolving]
